FAERS Safety Report 21733499 (Version 1)
Quarter: 2022Q4

REPORT INFORMATION
  Report Type: Report from Study
  Country: US (occurrence: US)
  Receive Date: 20221215
  Receipt Date: 20221215
  Transmission Date: 20230113
  Serious: Yes (Other)
  Sender: FDA-Public Use
  Company Number: US-ABBVIE-4234790

PATIENT
  Sex: Male

DRUGS (3)
  1. RINVOQ [Suspect]
     Active Substance: UPADACITINIB
     Indication: Rheumatoid arthritis
     Dosage: FORM STRENGTH: 15 MILLIGRAM
     Route: 048
     Dates: start: 20210827
  2. ORENCIA CLCK INJ [Concomitant]
     Indication: Product used for unknown indication
     Dosage: FORM STRENGTH: 125 MILLIGRAM/MILLILITERS
  3. ACTEMRA INJ ACTPEN [Concomitant]
     Indication: Product used for unknown indication

REACTIONS (1)
  - Surgery [Recovered/Resolved]
